FAERS Safety Report 5029598-X (Version None)
Quarter: 2006Q2

REPORT INFORMATION
  Report Type: 
  Country: None (occurrence: None)
  Receive Date: 20060620
  Receipt Date: 20060607
  Transmission Date: 20061013
  Serious: Yes (Other)
  Sender: FDA-Public Use
  Company Number: CA-GLAXOSMITHKLINE-A0609071A

PATIENT
  Age: 36 Year
  Sex: Female

DRUGS (1)
  1. NICORETTE OTC, MINT [Suspect]
     Dosage: 2MG UNKNOWN
     Route: 002

REACTIONS (1)
  - DEPENDENCE [None]
